FAERS Safety Report 5129965-X (Version None)
Quarter: 2006Q4

REPORT INFORMATION
  Report Type: 
  Country: None (occurrence: None)
  Receive Date: 20061013
  Receipt Date: 20060922
  Transmission Date: 20070319
  Serious: Yes (Other)
  Sender: FDA-Public Use
  Company Number: CH200609000384

PATIENT
  Age: 52 Year
  Sex: Female

DRUGS (6)
  1. CIALIS [Suspect]
     Indication: RAYNAUD'S PHENOMENON
     Dosage: 50 MG, DAILY (1/D), ORAL
     Route: 048
     Dates: start: 20041101, end: 20060822
  2. ALDACTONE [Concomitant]
  3. ASPIRIN [Concomitant]
  4. CALCIUM CARBONATE W/COLECALCIFEROL (CALCIUM CARBONATE, COLECALCIFEROL) [Concomitant]
  5. TRANSIPEG (MACROGOL 3350, POTASSIUM CHLORIDE, SODIUM BICARBONATE, SODI [Concomitant]
  6. PAMIDRONIC ACID (PAMIDRONIC ACID) [Concomitant]

REACTIONS (7)
  - AMYOTROPHY [None]
  - ARTHRALGIA [None]
  - MUSCLE ATROPHY [None]
  - NEUROPATHY [None]
  - PRESCRIBED OVERDOSE [None]
  - STRESS [None]
  - THORACIC OUTLET SYNDROME [None]
